FAERS Safety Report 7897112-7 (Version None)
Quarter: 2011Q4

REPORT INFORMATION
  Report Type: 
  Country: None (occurrence: None)
  Receive Date: 20111107
  Receipt Date: 20111027
  Transmission Date: 20120403
  Serious: Yes (Life-Threatening, Hospitalization)
  Sender: FDA-Public Use
  Company Number: FR-JNJFOC-20111007813

PATIENT
  Sex: Male

DRUGS (9)
  1. CLONAZEPAM [Suspect]
     Indication: PRODUCT USED FOR UNKNOWN INDICATION
     Dosage: 110 TABLETS
     Route: 048
     Dates: start: 20110606, end: 20110606
  2. RISPERDAL [Suspect]
     Indication: PRODUCT USED FOR UNKNOWN INDICATION
     Route: 048
  3. CLONAZEPAM [Suspect]
     Route: 048
  4. RISPERDAL [Suspect]
     Dosage: 30 TABLETS
     Route: 048
     Dates: start: 20110606, end: 20110606
  5. ACETAMINOPHEN [Suspect]
     Route: 048
  6. ACETAMINOPHEN [Suspect]
     Indication: PRODUCT USED FOR UNKNOWN INDICATION
     Route: 048
     Dates: start: 20110606, end: 20110606
  7. LEPTICUR [Suspect]
     Dosage: 45 TABLETS
     Route: 048
     Dates: start: 20110606, end: 20110606
  8. IBUPROFEN [Suspect]
     Indication: PRODUCT USED FOR UNKNOWN INDICATION
     Route: 048
     Dates: start: 20110606, end: 20110606
  9. LEPTICUR [Suspect]
     Indication: PRODUCT USED FOR UNKNOWN INDICATION
     Route: 048

REACTIONS (4)
  - HEPATITIS FULMINANT [None]
  - SUICIDE ATTEMPT [None]
  - RENAL FAILURE [None]
  - MULTIPLE DRUG OVERDOSE INTENTIONAL [None]
